FAERS Safety Report 9088702 (Version 1)
Quarter: 2013Q1

REPORT INFORMATION
  Report Type: Report from Study
  Country: US (occurrence: US)
  Receive Date: 20130201
  Receipt Date: 20130201
  Transmission Date: 20140127
  Serious: No
  Sender: FDA-Public Use
  Company Number: US-ABBOTT-12P-163-1023882-00

PATIENT
  Age: 46 Year
  Sex: Female

DRUGS (5)
  1. HUMIRA [Suspect]
     Indication: CROHN^S DISEASE
     Dates: start: 20120917, end: 20120917
  2. HUMIRA [Suspect]
     Dates: start: 20121001, end: 20121001
  3. HUMIRA [Suspect]
     Dates: end: 20121126
  4. HUMIRA [Suspect]
  5. LEXAPRO [Concomitant]
     Indication: DEPRESSION

REACTIONS (2)
  - Injection site pain [Not Recovered/Not Resolved]
  - Drug ineffective [Not Recovered/Not Resolved]
